FAERS Safety Report 5179610-2 (Version None)
Quarter: 2006Q4

REPORT INFORMATION
  Report Type: 
  Country: None (occurrence: None)
  Receive Date: 20061211
  Receipt Date: 20061129
  Transmission Date: 20070319
  Serious: Yes (Other)
  Sender: FDA-Public Use
  Company Number: 2006132232

PATIENT
  Age: 78 Year
  Sex: Female
  Weight: 67.1324 kg

DRUGS (10)
  1. LYRICA [Suspect]
     Indication: NEUROPATHY
     Dosage: 100 MG (50 MG, 2 IN 1 D), ORAL
     Route: 048
     Dates: start: 20061025
  2. LYRICA [Suspect]
     Indication: PAIN
     Dosage: 100 MG (50 MG, 2 IN 1 D), ORAL
     Route: 048
     Dates: start: 20061025
  3. ARICEPT [Concomitant]
  4. DETROL LA [Concomitant]
  5. LISINOPRIL [Concomitant]
  6. NAPROSYN [Concomitant]
  7. NORVASC [Concomitant]
  8. OMEPRAZOLE [Concomitant]
  9. SYNTHROID [Concomitant]
  10. LIBRAX [Concomitant]

REACTIONS (4)
  - CONFUSIONAL STATE [None]
  - DECREASED ACTIVITY [None]
  - DEMENTIA [None]
  - SOMNOLENCE [None]
